FAERS Safety Report 12808678 (Version 4)
Quarter: 2017Q3

REPORT INFORMATION
  Report Type: Spontaneous
  Country: US (occurrence: US)
  Receive Date: 20161004
  Receipt Date: 20170815
  Transmission Date: 20171127
  Serious: Yes (Other)
  Sender: FDA-Public Use
  Company Number: US-PFIZER INC-2016458186

PATIENT
  Age: 55 Year
  Sex: Female

DRUGS (1)
  1. VANCOMYCIN HCL [Suspect]
     Active Substance: VANCOMYCIN HYDROCHLORIDE
     Indication: PROPHYLAXIS
     Dosage: 1 G VANCOMYCIN IN 250 ML NORMAL SALINE

REACTIONS (2)
  - Anaphylactic reaction [Recovered/Resolved]
  - Disseminated intravascular coagulation [Recovered/Resolved]
